FAERS Safety Report 9731627 (Version 1)
Quarter: 2013Q4

REPORT INFORMATION
  Report Type: Spontaneous
  Country: US (occurrence: None)
  Receive Date: 20131204
  Receipt Date: 20131204
  Transmission Date: 20140711
  Serious: Yes (Hospitalization)
  Sender: FDA-Public Use
  Company Number: None

PATIENT
  Age: 73 Year
  Sex: Male
  Weight: 83.46 kg

DRUGS (2)
  1. RHYTHMOL [Suspect]
  2. PRADAXA [Suspect]

REACTIONS (1)
  - Product solubility abnormal [None]
